FAERS Safety Report 10473163 (Version 1)
Quarter: 2014Q3

REPORT INFORMATION
  Report Type: Spontaneous
  Country: US (occurrence: None)
  Receive Date: 20140922
  Receipt Date: 20140922
  Transmission Date: 20150326
  Serious: Yes (Hospitalization, Other)
  Sender: FDA-Public Use
  Company Number: FR-SEPTODONT-201402014

PATIENT
  Age: 55 Year
  Sex: Female

DRUGS (1)
  1. SCANDICAINE [Suspect]
     Active Substance: MEPIVACAINE HYDROCHLORIDE
     Indication: LOCAL ANAESTHESIA
     Dosage: 0.5 DF
     Route: 004

REACTIONS (5)
  - Pain in extremity [None]
  - Hypoaesthesia oral [None]
  - Hypertension [None]
  - Cerebrovascular accident [None]
  - Ataxia [None]
